FAERS Safety Report 4602023-6 (Version None)
Quarter: 2005Q2

REPORT INFORMATION
  Report Type: 
  Country: None (occurrence: None)
  Receive Date: 20050214
  Receipt Date: 20040511
  Transmission Date: 20051028
  Serious: Yes (Other)
  Sender: FDA-Public Use
  Company Number: 8004667

PATIENT
  Age: 26 Year
  Sex: Male

DRUGS (9)
  1. KEPPRA [Suspect]
     Indication: CONVULSION
     Dosage: 250 MG /D PO
     Route: 048
     Dates: start: 20021024, end: 20020101
  2. KEPPRA [Suspect]
     Indication: CONVULSION
     Dosage: 250 MG 1/2D PO
     Route: 048
     Dates: start: 20020101, end: 20021101
  3. KEPPRA [Suspect]
     Indication: CONVULSION
     Dosage: 500 MG 2/D PO
     Route: 048
     Dates: start: 20021101, end: 20030223
  4. KEPPRA [Suspect]
     Indication: CONVULSION
     Dosage: 750 MG 1/2D PO
     Route: 048
     Dates: start: 20030224, end: 20031023
  5. KEPPRA [Suspect]
     Indication: CONVULSION
     Dosage: 750 MG 3/D PO
     Route: 048
     Dates: start: 20031024, end: 20031112
  6. KEPPRA [Suspect]
     Indication: CONVULSION
     Dosage: 750 MG 2/D PO
     Route: 048
     Dates: start: 20031113
  7. NEURONTIN [Concomitant]
  8. DEPAKOTE [Concomitant]
  9. DILANTIN [Concomitant]

REACTIONS (3)
  - ANGER [None]
  - INAPPROPRIATE AFFECT [None]
  - SUICIDE ATTEMPT [None]
